FAERS Safety Report 19120111 (Version 1)
Quarter: 2021Q2

REPORT INFORMATION
  Report Type: Spontaneous
  Country: US (occurrence: US)
  Receive Date: 20210412
  Receipt Date: 20210412
  Transmission Date: 20210717
  Serious: No
  Sender: FDA-Public Use
  Company Number: US-ADVANZ PHARMA-202104002593

PATIENT

DRUGS (1)
  1. TRANYLCYPROMINE [Suspect]
     Active Substance: TRANYLCYPROMINE
     Dosage: 10 MG TABLET (SPLIT TO HALVE THE DOSAGE OR QUARTER THE DOSAGE)

REACTIONS (1)
  - Wrong technique in product usage process [Unknown]
